FAERS Safety Report 9438207 (Version 1)
Quarter: 2013Q3

REPORT INFORMATION
  Report Type: Spontaneous
  Country: US (occurrence: US)
  Receive Date: 20130802
  Receipt Date: 20130802
  Transmission Date: 20140515
  Serious: No
  Sender: FDA-Public Use
  Company Number: US-BRISTOL-MYERS SQUIBB COMPANY-17054347

PATIENT
  Sex: Female

DRUGS (3)
  1. COUMADIN TABS 5 MG [Suspect]
     Dosage: STARTED 2 YEARS AGO
  2. PREDNISONE [Concomitant]
     Dosage: 3 PILLS A DAY (START: 2 MONTHS AGO)
  3. LEVOTHYROXINE [Concomitant]
     Dosage: 75 UNITS NOS:1DF

REACTIONS (8)
  - Hypoaesthesia [Unknown]
  - Weight decreased [Unknown]
  - Tongue disorder [Unknown]
  - Skin disorder [Unknown]
  - Rhinorrhoea [Unknown]
  - Dysgeusia [Unknown]
  - Lip swelling [Unknown]
  - Peripheral coldness [Unknown]
